FAERS Safety Report 17955264 (Version 1)
Quarter: 2020Q2

REPORT INFORMATION
  Report Type: Spontaneous
  Country: HR (occurrence: HR)
  Receive Date: 20200629
  Receipt Date: 20200629
  Transmission Date: 20200714
  Serious: Yes (Life-Threatening)
  Sender: FDA-Public Use
  Company Number: HR-ROCHE-2632140

PATIENT
  Age: 47 Year
  Sex: Female

DRUGS (1)
  1. AVASTIN [Suspect]
     Active Substance: BEVACIZUMAB
     Indication: OVARIAN CANCER
     Dosage: 1000 MG
     Route: 042
     Dates: start: 20180906, end: 20200601

REACTIONS (2)
  - Cardiac ventricular thrombosis [Unknown]
  - Toxic cardiomyopathy [Unknown]

NARRATIVE: CASE EVENT DATE: 20200605
